FAERS Safety Report 10912404 (Version 2)
Quarter: 2015Q2

REPORT INFORMATION
  Report Type: Spontaneous
  Country: US (occurrence: US)
  Receive Date: 20150313
  Receipt Date: 20150601
  Transmission Date: 20150821
  Serious: Yes (Other)
  Sender: FDA-Public Use
  Company Number: US-PFIZER INC-2015090803

PATIENT
  Age: 63 Year
  Sex: Female

DRUGS (11)
  1. TRAZODONE [Concomitant]
     Active Substance: TRAZODONE HYDROCHLORIDE
     Dosage: 150 MG, DAILY (50 MG, 3 AT BEDTIME)
     Dates: start: 201008
  2. METHYLPREDNISOLONE. [Suspect]
     Active Substance: METHYLPREDNISOLONE
     Indication: PAIN IN EXTREMITY
     Dosage: 4 MG, UNK
     Dates: start: 200907
  3. METHYLPREDNISOLONE. [Suspect]
     Active Substance: METHYLPREDNISOLONE
     Indication: ARTHRALGIA
     Dosage: 10 MG, UNK
     Dates: start: 201103
  4. LYRICA [Concomitant]
     Active Substance: PREGABALIN
     Dosage: 50 MG, 2X/DAY
     Dates: start: 201110
  5. METHYLPREDNISOLONE. [Suspect]
     Active Substance: METHYLPREDNISOLONE
     Indication: FIBROMYALGIA
     Dosage: 4 MG, UNK
     Dates: start: 200905
  6. CALAN [Concomitant]
     Active Substance: VERAPAMIL HYDROCHLORIDE
     Dosage: 250 MG, 2X/DAY
     Dates: start: 199612
  7. METHYLPREDNISOLONE. [Suspect]
     Active Substance: METHYLPREDNISOLONE
     Indication: BACK PAIN
     Dosage: 4 MG, UNK
     Dates: start: 201009
  8. METHYLPREDNISOLONE. [Suspect]
     Active Substance: METHYLPREDNISOLONE
     Indication: ARTHRALGIA
  9. PREMARIN [Concomitant]
     Active Substance: ESTROGENS, CONJUGATED
     Dosage: 0.3 MG, 1X/DAY
     Dates: start: 199201
  10. HYDROCODONE [Concomitant]
     Active Substance: HYDROCODONE
     Dosage: 5/325 MG, 2 1/2 TABS DAILY
     Dates: start: 199904
  11. METHYLPREDNISOLONE. [Suspect]
     Active Substance: METHYLPREDNISOLONE
     Indication: MUSCULOSKELETAL PAIN
     Dosage: 5 MG
     Dates: start: 201307

REACTIONS (6)
  - Dizziness [Unknown]
  - Suicidal ideation [Not Recovered/Not Resolved]
  - Nervousness [Not Recovered/Not Resolved]
  - Drug effect incomplete [Unknown]
  - Insomnia [Unknown]
  - Anxiety [Not Recovered/Not Resolved]

NARRATIVE: CASE EVENT DATE: 200905
